FAERS Safety Report 17109449 (Version 1)
Quarter: 2019Q4

REPORT INFORMATION
  Report Type: Report from Study
  Country: None (occurrence: ES)
  Receive Date: 20191204
  Receipt Date: 20191204
  Transmission Date: 20200122
  Serious: Yes (Other)
  Sender: FDA-Public Use
  Company Number: ES-ABBVIE-19K-144-2923865-00

PATIENT
  Age: 74 Year
  Sex: Male
  Weight: 95 kg

DRUGS (1)
  1. DUODOPA [Suspect]
     Active Substance: CARBIDOPA\LEVODOPA
     Indication: PARKINSON^S DISEASE
     Dosage: 1890 MG DAILY
     Route: 050
     Dates: start: 20180423

REACTIONS (21)
  - Infection [Unknown]
  - Stoma site odour [Recovered/Resolved]
  - Freezing phenomenon [Recovered/Resolved]
  - Embedded device [Recovered/Resolved]
  - Escherichia infection [Unknown]
  - Flatulence [Recovered/Resolved]
  - Stoma site discharge [Recovered/Resolved]
  - Vomiting [Recovered/Resolved]
  - Device issue [Recovered/Resolved]
  - Head injury [Unknown]
  - Escherichia test positive [Unknown]
  - Contusion [Unknown]
  - Gastrointestinal stoma complication [Recovered/Resolved]
  - Stoma site haemorrhage [Recovered/Resolved]
  - Vomiting [Recovered/Resolved]
  - Diarrhoea [Recovered/Resolved]
  - Abdominal pain upper [Recovered/Resolved]
  - Fall [Recovered/Resolved]
  - Gait inability [Recovering/Resolving]
  - Stoma site pain [Recovered/Resolved]
  - Device issue [Unknown]

NARRATIVE: CASE EVENT DATE: 201908
